FAERS Safety Report 5494592-1 (Version None)
Quarter: 2007Q4

REPORT INFORMATION
  Report Type: 
  Country: None (occurrence: None)
  Receive Date: 20071022
  Receipt Date: 20070926
  Transmission Date: 20080405
  Serious: Yes (Hospitalization)
  Sender: FDA-Public Use
  Company Number: 07-032B

PATIENT
  Age: 56 Year
  Sex: Female

DRUGS (19)
  1. LORTAB [Suspect]
  2. LORTAB [Suspect]
  3. VARENICLINE [Suspect]
  4. RIVAROXABAN [Suspect]
  5. ASPIRIN [Suspect]
  6. ASPIRIN [Concomitant]
  7. FOLTX [Concomitant]
  8. POTASSIUM CHLORIDE [Concomitant]
  9. CALCIUM PLUS VITAMIN D [Concomitant]
  10. NITROGLYCERIN [Concomitant]
  11. ISOSORBIDE MONOHYDRATE [Concomitant]
  12. PAROXETINE HCL [Concomitant]
  13. PLAVIX [Concomitant]
  14. NEXIUM [Concomitant]
  15. FLEXERIL [Concomitant]
  16. LISINOPRIL [Concomitant]
  17. LISINOPRIL [Concomitant]
  18. TOPROL-XL [Concomitant]
  19. PRAVASTATIN [Concomitant]

REACTIONS (3)
  - DRUG INTERACTION [None]
  - MENTAL STATUS CHANGES [None]
  - PHARMACEUTICAL PRODUCT COMPLAINT [None]
